FAERS Safety Report 10068906 (Version 5)
Quarter: 2014Q3

REPORT INFORMATION
  Report Type: Spontaneous
  Country: IT (occurrence: IT)
  Receive Date: 20140409
  Receipt Date: 20140725
  Transmission Date: 20150326
  Serious: Yes (Other)
  Sender: FDA-Public Use
  Company Number: IT-PFIZER INC-2014100070

PATIENT
  Age: 28 Year
  Sex: Female

DRUGS (2)
  1. ALPRAZOLAM. [Suspect]
     Active Substance: ALPRAZOLAM
     Dosage: 40 DF, TOTAL
     Route: 048
     Dates: start: 20140311, end: 20140311
  2. DELORAZEPAM [Suspect]
     Active Substance: DELORAZEPAM
     Dosage: 40 ML, TOTAL (2 BOTTLES)
     Route: 048
     Dates: start: 20140311, end: 20140311

REACTIONS (5)
  - Loss of consciousness [Unknown]
  - Drug abuse [Unknown]
  - Partner stress [Unknown]
  - Panic attack [Unknown]
  - Suicide attempt [Unknown]

NARRATIVE: CASE EVENT DATE: 20140311
